FAERS Safety Report 7476820-6 (Version None)
Quarter: 2011Q2

REPORT INFORMATION
  Report Type: 
  Country: None (occurrence: None)
  Receive Date: 20110512
  Receipt Date: 20110504
  Transmission Date: 20111010
  Serious: Yes (Hospitalization)
  Sender: FDA-Public Use
  Company Number: FR-PFIZER INC-2011095463

PATIENT
  Age: 34 Year
  Sex: Male

DRUGS (3)
  1. SIROLIMUS [Suspect]
     Indication: IMMUNOSUPPRESSANT DRUG THERAPY
     Dosage: UNK
     Dates: start: 20061106
  2. CELLCEPT [Suspect]
     Dosage: UNK
     Route: 048
     Dates: start: 20060901
  3. PREDNISONE [Suspect]
     Dosage: UNK
     Route: 048
     Dates: start: 20060901

REACTIONS (6)
  - ANAL ABSCESS [None]
  - PANCREATITIS [None]
  - KIDNEY TRANSPLANT REJECTION [None]
  - OEDEMA [None]
  - SEPSIS [None]
  - ESCHERICHIA INFECTION [None]
